FAERS Safety Report 4576409-2 (Version None)
Quarter: 2005Q1

REPORT INFORMATION
  Report Type: 
  Country: None (occurrence: None)
  Receive Date: 20050207
  Receipt Date: 20050126
  Transmission Date: 20050727
  Serious: Yes (Hospitalization)
  Sender: FDA-Public Use
  Company Number: 211808

PATIENT
  Age: 26 Year
  Sex: Female
  Weight: 45 kg

DRUGS (7)
  1. MABTHERA(RITUXIMAB) CONC FOR SOLUTION FOR INFUSION [Suspect]
     Indication: NON-HODGKIN'S LYMPHOMA
     Dosage: 500 MG INTRAVENOUS
     Route: 042
     Dates: start: 20030213, end: 20030213
  2. METHOTREXATE [Suspect]
     Indication: NON-HODGKIN'S LYMPHOMA
     Dosage: 4 G INTRAVENOUS
     Route: 042
     Dates: start: 20030317, end: 20030707
  3. ETOPOSIDE [Suspect]
     Indication: NON-HODGKIN'S LYMPHOMA
     Dosage: 600 MG INTRAVENOUS
     Route: 042
     Dates: start: 20030113
  4. CYCLOPHOSPHAMIDE [Suspect]
     Indication: NON-HODGKIN'S LYMPHOMA
     Dosage: 1300 MGINTRAVENOUS
     Route: 042
     Dates: start: 20021229, end: 20030213
  5. IFOSFAMIDE [Concomitant]
  6. VINCRISTINE [Concomitant]
  7. PREDNISONE TAB [Concomitant]

REACTIONS (1)
  - ACUTE MYELOID LEUKAEMIA [None]
